FAERS Safety Report 17096090 (Version 1)
Quarter: 2019Q4

REPORT INFORMATION
  Report Type: Spontaneous
  Country: RU (occurrence: RU)
  Receive Date: 20191202
  Receipt Date: 20191202
  Transmission Date: 20200122
  Serious: Yes (Other)
  Sender: FDA-Public Use
  Company Number: RU-DRREDDYS-RUS/RUS/19/0116381

PATIENT
  Age: 55 Year
  Sex: Female

DRUGS (17)
  1. FLEMOXIN SOLUTAB [Suspect]
     Active Substance: AMOXICILLIN
     Indication: GASTRITIS EROSIVE
  2. PRADAXA [Concomitant]
     Active Substance: DABIGATRAN ETEXILATE MESYLATE
     Indication: MITRAL VALVE DISEASE
     Route: 048
  3. CONCOR [Concomitant]
     Active Substance: BISOPROLOL FUMARATE
     Indication: MITRAL VALVE DISEASE
     Route: 048
  4. FLEMOXIN SOLUTAB [Suspect]
     Active Substance: AMOXICILLIN
     Indication: HELICOBACTER INFECTION
     Dates: start: 20190522, end: 20190702
  5. REBAGIT [Suspect]
     Active Substance: REBAMIPIDE
     Indication: GASTRITIS EROSIVE
     Dates: start: 20190522, end: 20190702
  6. TORASEMIDE [Concomitant]
     Active Substance: TORSEMIDE
     Indication: MITRAL VALVE DISEASE
     Route: 048
  7. TORASEMIDE [Concomitant]
     Active Substance: TORSEMIDE
     Indication: ATRIAL FIBRILLATION
  8. RAZO 20MG [Suspect]
     Active Substance: RABEPRAZOLE SODIUM
     Indication: GASTRITIS EROSIVE
     Route: 048
     Dates: start: 20190522, end: 20190702
  9. DE-NOL (BISMUTH SUBCITRATE) [Suspect]
     Active Substance: BISMUTH SUBCITRATE
     Indication: GASTRITIS EROSIVE
     Dates: start: 20190522, end: 20190702
  10. CONCOR [Concomitant]
     Active Substance: BISOPROLOL FUMARATE
     Indication: ATRIAL FIBRILLATION
  11. ESPIRO [Concomitant]
     Active Substance: EPLERENONE
     Indication: MITRAL VALVE DISEASE
     Route: 048
  12. ORDISS [Concomitant]
     Indication: MITRAL VALVE DISEASE
     Route: 048
  13. ESPIRO [Concomitant]
     Active Substance: EPLERENONE
     Indication: ATRIAL FIBRILLATION
  14. ORDISS [Concomitant]
     Indication: ATRIAL FIBRILLATION
  15. TORVACARD [Concomitant]
     Active Substance: ATORVASTATIN CALCIUM
     Indication: ATRIAL FIBRILLATION
  16. PRADAXA [Concomitant]
     Active Substance: DABIGATRAN ETEXILATE MESYLATE
     Indication: ATRIAL FIBRILLATION
  17. TORVACARD [Concomitant]
     Active Substance: ATORVASTATIN CALCIUM
     Indication: MITRAL VALVE DISEASE
     Route: 048

REACTIONS (1)
  - Gastritis haemorrhagic [Recovered/Resolved]

NARRATIVE: CASE EVENT DATE: 20190702
